FAERS Safety Report 8833527 (Version 1)
Quarter: 2012Q4

REPORT INFORMATION
  Report Type: 
  Country: US (occurrence: US)
  Receive Date: 20121010
  Receipt Date: 20121010
  Transmission Date: 20130627
  Serious: Yes (Hospitalization, Other)
  Sender: FDA-Public Use
  Company Number: US-INCYTE CORPORATION-2012IN001310

PATIENT
  Age: 71 None
  Sex: Male
  Weight: 87.5 kg

DRUGS (7)
  1. JAKAFI [Suspect]
     Indication: MYELOFIBROSIS
     Dosage: 20 mg, bid
     Route: 048
     Dates: start: 20120404, end: 20120606
  2. JAKAFI [Suspect]
     Dosage: 20 mg, bid
     Route: 048
     Dates: start: 20120625
  3. TOPROL [Concomitant]
     Dosage: 50 mg, qd
     Route: 048
  4. ASPIRIN [Concomitant]
     Dosage: 81 mg, qd
     Route: 048
  5. PLAVIX [Concomitant]
     Dosage: 75 mg, qd
     Route: 048
  6. SIMVASTATIN [Concomitant]
     Dosage: 10 mg, qhs
     Route: 048
  7. PROTONIX [Concomitant]

REACTIONS (8)
  - Ventricular hypokinesia [Not Recovered/Not Resolved]
  - Chest pain [Not Recovered/Not Resolved]
  - Dyspnoea exertional [Not Recovered/Not Resolved]
  - Dyspnoea [Not Recovered/Not Resolved]
  - Fatigue [Not Recovered/Not Resolved]
  - Anaemia [Not Recovered/Not Resolved]
  - Haemoglobin decreased [Not Recovered/Not Resolved]
  - Red blood cell count decreased [Unknown]
